FAERS Safety Report 12394690 (Version 1)
Quarter: 2016Q2

REPORT INFORMATION
  Report Type: Spontaneous
  Country: GB (occurrence: GB)
  Receive Date: 20160523
  Receipt Date: 20160523
  Transmission Date: 20160815
  Serious: Yes (Death)
  Sender: FDA-Public Use
  Company Number: GB-CORDEN PHARMA LATINA S.P.A.-GB-2016COR000151

PATIENT

DRUGS (3)
  1. TOPOTECAN [Suspect]
     Active Substance: TOPOTECAN\TOPOTECAN HYDROCHLORIDE
     Indication: GERM CELL NEOPLASM
     Dosage: 10 MG/M2 ON DAYS 1, 2 AND 3, GIVEN 12 H AFTER ADMINISTRATION OF CARBOPLATIN
     Route: 065
  2. THIOTEPA. [Suspect]
     Active Substance: THIOTEPA
     Indication: GERM CELL NEOPLASM
     Dosage: 125 MG/M2/DAY ON DAYS 1-4
     Route: 065
  3. CARBOPLATIN. [Suspect]
     Active Substance: CARBOPLATIN
     Indication: GERM CELL NEOPLASM
     Dosage: AUC 7, ON DAYS 1, 2 AND 3
     Route: 065

REACTIONS (2)
  - Acute respiratory distress syndrome [Fatal]
  - Neutropenic sepsis [Fatal]
